FAERS Safety Report 16973382 (Version 1)
Quarter: 2019Q4

REPORT INFORMATION
  Report Type: Spontaneous
  Country: US (occurrence: US)
  Receive Date: 20191030
  Receipt Date: 20191030
  Transmission Date: 20200122
  Serious: Yes (Other)
  Sender: FDA-Public Use
  Company Number: US-PROCTER+GAMBLE-GS19113417

PATIENT

DRUGS (1)
  1. VICKS SINEX NOS [Suspect]
     Active Substance: OXYMETAZOLINE HYDROCHLORIDE OR PHENYLEPHRINE HYDROCHLORIDE
     Route: 045

REACTIONS (2)
  - Drug dependence [Unknown]
  - Product administration error [Unknown]
